FAERS Safety Report 16803713 (Version 1)
Quarter: 2019Q3

REPORT INFORMATION
  Report Type: Spontaneous
  Country: NO (occurrence: NO)
  Receive Date: 20190913
  Receipt Date: 20190913
  Transmission Date: 20191005
  Serious: Yes (Hospitalization)
  Sender: FDA-Public Use
  Company Number: NO-TEVA-2019-NO-1105980

PATIENT
  Age: 44 Year
  Sex: Female

DRUGS (7)
  1. FOLSYRE NAF [Concomitant]
     Active Substance: FOLIC ACID
     Dosage: 6 TABLETS A 1 MG ONCE WEEKLY, THE DAY AFTER ADMINISTRATION OF METHOTREXATE (POSSIBLY CHANGED TO THIS
     Route: 048
     Dates: start: 2010
  2. METHOTREXATE. [Suspect]
     Active Substance: METHOTREXATE
     Indication: RHEUMATOID ARTHRITIS
     Dosage: INITIALLY 12,5 MG X 1 PER WEEK, INCREASED TO 20 MG X 1 AFTER BENEPALI WAS WITHDRAWN. PROBABLY A PAUS
     Route: 048
     Dates: start: 2010
  3. IBUX [Concomitant]
     Active Substance: IBUPROFEN
     Indication: RHEUMATOID ARTHRITIS
     Route: 048
     Dates: end: 2019
  4. BENEPALI [Suspect]
     Active Substance: ETANERCEPT
     Indication: RHEUMATOID ARTHRITIS
     Dosage: 50MG/ WK/ 2 YEARS
     Route: 058
     Dates: start: 201702, end: 201904
  5. OMEPRAZOLE. [Concomitant]
     Active Substance: OMEPRAZOLE
     Indication: PROPHYLAXIS AGAINST GASTROINTESTINAL ULCER
     Dosage: 20MG/DAY
     Route: 048
  6. VAGIFEM [Concomitant]
     Active Substance: ESTRADIOL
     Dosage: INITIALLY 10 MICROGRAM DAILY FOR 14 DAYS, THEN 10 MICROGRAM TWICE PER WEEK/ 3 DAYS
     Route: 067
  7. PARACETAMOL [Concomitant]
     Active Substance: ACETAMINOPHEN
     Indication: RHEUMATOID ARTHRITIS
     Dosage: 1 GRAM UP TO THREE TIMES PER DAY/ 8 HOURS
     Route: 048

REACTIONS (1)
  - Soft tissue sarcoma [Recovering/Resolving]

NARRATIVE: CASE EVENT DATE: 2019
